FAERS Safety Report 4524015-8 (Version None)
Quarter: 2004Q4

REPORT INFORMATION
  Report Type: 
  Country: None (occurrence: None)
  Receive Date: 20041209
  Receipt Date: 20041126
  Transmission Date: 20050328
  Serious: Yes (Death)
  Sender: FDA-Public Use
  Company Number: 2004S1003546

PATIENT
  Age: 9 Year
  Sex: Male

DRUGS (2)
  1. CYSTAGON [Suspect]
     Indication: CYSTINOSIS
     Dosage: 400MG QD, THEN 600MG QD, THEN 800MG QD, ORAL
     Route: 048
     Dates: start: 19960501, end: 20030101
  2. CYSTAGON [Suspect]
     Indication: CYSTINOSIS
     Dosage: 400MG QD, THEN 600MG QD, THEN 800MG QD, ORAL
     Route: 048
     Dates: start: 20040301, end: 20041101

REACTIONS (14)
  - ANGIOPATHY [None]
  - CEREBRAL ISCHAEMIA [None]
  - COMA [None]
  - COMPRESSION FRACTURE [None]
  - CONVULSION [None]
  - DIFFICULTY IN WALKING [None]
  - FIBULA FRACTURE [None]
  - MASS [None]
  - OSTEOPENIA [None]
  - PAIN IN EXTREMITY [None]
  - SKIN LESION [None]
  - SKIN STRIAE [None]
  - STARING [None]
  - TIBIA FRACTURE [None]
